FAERS Safety Report 11506609 (Version 1)
Quarter: 2015Q3

REPORT INFORMATION
  Report Type: Spontaneous
  Country: US (occurrence: US)
  Receive Date: 20150915
  Receipt Date: 20150915
  Transmission Date: 20151125
  Serious: No
  Sender: FDA-Public Use
  Company Number: US-PFIZER INC-2015294230

PATIENT
  Age: 55 Year
  Sex: Female

DRUGS (1)
  1. IBRANCE [Suspect]
     Active Substance: PALBOCICLIB
     Indication: BREAST CANCER
     Dosage: 100 MG ONCE DAILY CYCLIC (14 DAYS ON/ 7 DAYS OFF)
     Dates: start: 20150729

REACTIONS (2)
  - Swelling face [Unknown]
  - Rash [Unknown]
